FAERS Safety Report 10971527 (Version 1)
Quarter: 2015Q1

REPORT INFORMATION
  Report Type: Report from Study
  Country: US (occurrence: US)
  Receive Date: 20150331
  Receipt Date: 20150331
  Transmission Date: 20150721
  Serious: Yes (Hospitalization, Other)
  Sender: FDA-Public Use
  Company Number: US-WATSON-2015-06097

PATIENT
  Age: 28 Year
  Sex: Female
  Weight: 50 kg

DRUGS (7)
  1. DILAUDID [Suspect]
     Active Substance: HYDROMORPHONE HYDROCHLORIDE
     Indication: ABDOMINAL PAIN
     Dosage: UNK UNK, SINGLE
     Route: 042
     Dates: start: 20150126, end: 20150127
  2. ZOFRAN                             /00955301/ [Suspect]
     Active Substance: ONDANSETRON HYDROCHLORIDE
     Indication: ABDOMINAL PAIN
     Dosage: UNK UNK, SINGLE
     Route: 042
     Dates: start: 20150126, end: 20150127
  3. EFFEXOR [Concomitant]
     Active Substance: VENLAFAXINE HYDROCHLORIDE
     Indication: PRODUCT USED FOR UNKNOWN INDICATION
     Route: 065
  4. TORADOL [Suspect]
     Active Substance: KETOROLAC TROMETHAMINE
     Indication: ABDOMINAL PAIN
     Dosage: 30 MG, SINGLE
     Route: 042
     Dates: start: 20150126, end: 20150127
  5. OLEPTRO [Concomitant]
     Active Substance: TRAZODONE HYDROCHLORIDE
     Indication: PRODUCT USED FOR UNKNOWN INDICATION
     Dosage: UNK
     Route: 065
     Dates: start: 201410
  6. NORCO [Suspect]
     Active Substance: ACETAMINOPHEN\HYDROCODONE BITARTRATE
     Indication: ABDOMINAL PAIN
     Dosage: 1 DF, PRN
     Route: 048
     Dates: start: 20150127, end: 20150128
  7. PLACEBO [Suspect]
     Active Substance: UNSPECIFIED INGREDIENT
     Indication: GENERALISED ANXIETY DISORDER
     Dosage: UNK, UNKNOWN
     Route: 065
     Dates: start: 20150129, end: 20150202

REACTIONS (2)
  - Dizziness [Recovering/Resolving]
  - Vertigo [Recovering/Resolving]

NARRATIVE: CASE EVENT DATE: 20150204
